FAERS Safety Report 20433133 (Version 1)
Quarter: 2022Q1

REPORT INFORMATION
  Report Type: Spontaneous
  Country: US (occurrence: US)
  Receive Date: 20220205
  Receipt Date: 20220205
  Transmission Date: 20220423
  Serious: No
  Sender: FDA-Public Use
  Company Number: US-SA-SAC20220131000860

PATIENT
  Age: 20 Year
  Sex: Male

DRUGS (2)
  1. DUPIXENT [Suspect]
     Active Substance: DUPILUMAB
     Indication: Dermatitis atopic
     Dosage: 300 MG, QOW
     Route: 058
     Dates: start: 202107
  2. CAFFEINE [Concomitant]
     Active Substance: CAFFEINE
     Dosage: UNK, PRN

REACTIONS (3)
  - Headache [Unknown]
  - Mental disorder [Unknown]
  - General physical condition abnormal [Unknown]
